FAERS Safety Report 7349976-3 (Version None)
Quarter: 2011Q1

REPORT INFORMATION
  Report Type: 
  Country: None (occurrence: None)
  Receive Date: 20110314
  Receipt Date: 20110309
  Transmission Date: 20110831
  Serious: Yes (Other)
  Sender: FDA-Public Use
  Company Number: FI-ROCHE-763487

PATIENT
  Sex: Male

DRUGS (8)
  1. PREDNISOLONE [Concomitant]
     Route: 048
  2. SANDIMMUNE [Concomitant]
  3. FOLIC ACID [Concomitant]
  4. CALCIUM [Concomitant]
  5. LIPCUT [Concomitant]
  6. ROACTEMRA [Suspect]
     Route: 042
     Dates: start: 20101202
  7. MYOCRISIN [Concomitant]
  8. PLENDIL [Concomitant]

REACTIONS (1)
  - EOSINOPHILIA [None]
